FAERS Safety Report 19055949 (Version 1)
Quarter: 2021Q1

REPORT INFORMATION
  Report Type: Spontaneous
  Country: US (occurrence: US)
  Receive Date: 20210324
  Receipt Date: 20210324
  Transmission Date: 20210420
  Serious: Yes (Hospitalization)
  Sender: FDA-Public Use
  Company Number: None

PATIENT
  Age: 62 Year
  Sex: Female
  Weight: 63.5 kg

DRUGS (2)
  1. CARBOPLATIN. [Suspect]
     Active Substance: CARBOPLATIN
     Dates: end: 20200902
  2. TAXOL [Suspect]
     Active Substance: PACLITAXEL
     Dates: end: 20200902

REACTIONS (6)
  - Dermatitis [None]
  - Pruritus [None]
  - Rash [None]
  - Lip swelling [None]
  - Rash pustular [None]
  - Stomatitis [None]

NARRATIVE: CASE EVENT DATE: 20200910
